FAERS Safety Report 5743484-9 (Version None)
Quarter: 2008Q2

REPORT INFORMATION
  Report Type: 
  Country: None (occurrence: None)
  Receive Date: 20080519
  Receipt Date: 20080519
  Transmission Date: 20081010
  Serious: Yes (Life-Threatening, Other)
  Sender: FDA-Public Use
  Company Number: None

PATIENT
  Age: 73 Year
  Sex: Male
  Weight: 91.173 kg

DRUGS (1)
  1. DIGITEK 0.125 CAREMARK MAIL ORDER PHARMACY [Suspect]
     Indication: CARDIAC DISORDER
     Dosage: 0.125 1 DAILY A.M. PO
     Route: 048

REACTIONS (9)
  - ACTIVITIES OF DAILY LIVING IMPAIRED [None]
  - ATRIAL FIBRILLATION [None]
  - DEPRESSION [None]
  - FATIGUE [None]
  - FEELING ABNORMAL [None]
  - LETHARGY [None]
  - MEMORY IMPAIRMENT [None]
  - MENTAL DISORDER [None]
  - PHARMACEUTICAL PRODUCT COMPLAINT [None]
